FAERS Safety Report 8193358-1 (Version None)
Quarter: 2012Q1

REPORT INFORMATION
  Report Type: 
  Country: None (occurrence: None)
  Receive Date: 20120308
  Receipt Date: 20120301
  Transmission Date: 20120608
  Serious: Yes (Other)
  Sender: FDA-Public Use
  Company Number: US-JNJFOC-20120301947

PATIENT
  Age: 30 Year
  Sex: Male
  Weight: 127.01 kg

DRUGS (9)
  1. BENADRYL [Suspect]
     Indication: HYPERSENSITIVITY
     Route: 048
     Dates: start: 20120228
  2. BENADRYL [Suspect]
     Route: 048
  3. PREDNISONE TAB [Concomitant]
     Indication: FOOD ALLERGY
     Route: 065
     Dates: start: 20120201
  4. BUPROPION HCL [Concomitant]
     Indication: MAJOR DEPRESSION
     Dosage: FOR TWO WEEKS
     Route: 065
     Dates: start: 20120201
  5. INSULIN [Concomitant]
     Indication: DIABETES MELLITUS
     Route: 065
  6. PRAVASTATIN SODIUM [Concomitant]
     Indication: HYPERTENSION
     Dosage: FOR MONTHS
     Route: 065
  7. LISINOPRIL [Concomitant]
     Indication: RENAL DISORDER
     Dosage: FOR YEARS
     Route: 065
  8. METFORMIN HYDROCHLORIDE [Concomitant]
     Indication: ROUTINE HEALTH MAINTENANCE
     Dosage: FOR YEARS
     Route: 065
  9. ZANTAC [Concomitant]
     Indication: FOOD ALLERGY
     Dosage: FOR TWO DAYS
     Route: 065
     Dates: start: 20120201

REACTIONS (2)
  - BLOOD GLUCOSE INCREASED [None]
  - OFF LABEL USE [None]
